FAERS Safety Report 19323588 (Version 3)
Quarter: 2021Q3

REPORT INFORMATION
  Report Type: Spontaneous
  Country: CO (occurrence: CO)
  Receive Date: 20210528
  Receipt Date: 20210721
  Transmission Date: 20211014
  Serious: Yes (Other)
  Sender: FDA-Public Use
  Company Number: CO-AMGEN-COLSP2021079696

PATIENT
  Age: 60 Year
  Sex: Male
  Weight: 68 kg

DRUGS (7)
  1. DEXAMETHASONE PHOSPHATE [Concomitant]
     Active Substance: DEXAMETHASONE PHOSPHATE
     Indication: GLIOBLASTOMA
  2. MORPHINE [Concomitant]
     Active Substance: MORPHINE
     Indication: PAIN
     Dosage: 2 DROP, Q6H
     Route: 048
     Dates: start: 20210511
  3. MVASI [Suspect]
     Active Substance: BEVACIZUMAB-AWWB
     Indication: OFF LABEL USE
  4. DEXAMETHASONE PHOSPHATE [Concomitant]
     Active Substance: DEXAMETHASONE PHOSPHATE
     Indication: BRAIN NEOPLASM MALIGNANT
     Dosage: 8 MILLIGRAM, QD
     Route: 042
     Dates: start: 20210422
  5. MVASI [Suspect]
     Active Substance: BEVACIZUMAB-AWWB
     Indication: GLIOBLASTOMA
  6. MVASI [Suspect]
     Active Substance: BEVACIZUMAB-AWWB
     Indication: BRAIN NEOPLASM MALIGNANT
     Dosage: 450 MILLIGRAM, QD
     Route: 042
     Dates: start: 20210422
  7. CARMUSTINE. [Concomitant]
     Active Substance: CARMUSTINE
     Indication: BRAIN NEOPLASM MALIGNANT
     Dosage: 100 MILLIGRAM, QD
     Route: 042
     Dates: start: 20210430

REACTIONS (7)
  - Off label use [Unknown]
  - Constipation [Recovering/Resolving]
  - Slow speech [Recovering/Resolving]
  - Vomiting [Recovering/Resolving]
  - Gait inability [Recovering/Resolving]
  - Neurological decompensation [Recovering/Resolving]
  - Decreased appetite [Recovering/Resolving]

NARRATIVE: CASE EVENT DATE: 20210422
